FAERS Safety Report 18780424 (Version 1)
Quarter: 2021Q1

REPORT INFORMATION
  Report Type: Other
  Country: US (occurrence: US)
  Receive Date: 20210125
  Receipt Date: 20210125
  Transmission Date: 20210419
  Serious: No
  Sender: FDA-Public Use
  Company Number: US-ROCHE-2754844

PATIENT
  Sex: Female

DRUGS (2)
  1. OCREVUS [Suspect]
     Active Substance: OCRELIZUMAB
     Dosage: EVERY 2 WEEKS AND THEN EVERY 6 MONTHS
     Route: 065
  2. OCREVUS [Suspect]
     Active Substance: OCRELIZUMAB
     Indication: RELAPSING MULTIPLE SCLEROSIS
     Dosage: PRESCRIBED WITH 300 MG DAY 1 AND DAY 15 THEN 600 MG, EVERY 6 MONTHS?DATE OF TREATMENT: 31/JAN/2019,
     Route: 065
     Dates: start: 20190117, end: 20200709

REACTIONS (1)
  - COVID-19 [Not Recovered/Not Resolved]
